FAERS Safety Report 17361082 (Version 1)
Quarter: 2020Q1

REPORT INFORMATION
  Report Type: Spontaneous
  Country: US (occurrence: US)
  Receive Date: 20200131
  Receipt Date: 20200131
  Transmission Date: 20200409
  Serious: No
  Sender: FDA-Public Use
  Company Number: None

PATIENT
  Age: 57 Year
  Sex: Female
  Weight: 65.25 kg

DRUGS (3)
  1. LEVOTHYROXINE 112MCG [Concomitant]
     Active Substance: LEVOTHYROXINE
     Dates: start: 20190316
  2. DULOXETINE. [Suspect]
     Active Substance: DULOXETINE
     Indication: DEPRESSION
     Route: 048
     Dates: start: 20190702, end: 20200120
  3. METFORMIN 500MG [Concomitant]
     Active Substance: METFORMIN HYDROCHLORIDE
     Dates: start: 20190316

REACTIONS (1)
  - Muscle spasms [None]

NARRATIVE: CASE EVENT DATE: 20191231
